FAERS Safety Report 19835722 (Version 3)
Quarter: 2022Q4

REPORT INFORMATION
  Report Type: Spontaneous
  Country: DE (occurrence: DE)
  Receive Date: 20210914
  Receipt Date: 20221025
  Transmission Date: 20230113
  Serious: Yes (Hospitalization)
  Sender: FDA-Public Use
  Company Number: DE-NOVARTISPH-NVSC2021DE202205

PATIENT
  Age: 82 Year
  Sex: Female

DRUGS (18)
  1. ESCITALOPRAM [Suspect]
     Active Substance: ESCITALOPRAM OXALATE
     Indication: Product used for unknown indication
     Dosage: 10 MG, BID (2-0-1-0)
     Route: 048
  2. MIRTAZAPINE [Suspect]
     Active Substance: MIRTAZAPINE
     Indication: Product used for unknown indication
     Dosage: 15 MG, QD (0-0-1-0)
     Route: 048
  3. LETROZOLE [Suspect]
     Active Substance: LETROZOLE
     Indication: Product used for unknown indication
     Dosage: 2.5 MG, QD (1-0-0-0)
     Route: 048
  4. METOPROLOL [Suspect]
     Active Substance: METOPROLOL
     Indication: Product used for unknown indication
     Dosage: 23.7 MG, BID (1-0-1-0)
     Route: 048
  5. XARELTO [Suspect]
     Active Substance: RIVAROXABAN
     Indication: Product used for unknown indication
     Dosage: 15 MG, QD (1-0-0-0)
     Route: 048
  6. TOCILIZUMAB [Suspect]
     Active Substance: TOCILIZUMAB
     Indication: Product used for unknown indication
     Dosage: 162 MG (DONNERSTAGS, INJEKTIONS-/INFUSIONSL?SUNG)
     Route: 058
  7. LEVETIRACETAM [Concomitant]
     Active Substance: LEVETIRACETAM
     Indication: Product used for unknown indication
     Dosage: 1000 MG, BID (1-0-1-0)
     Route: 048
  8. ATORVASTATIN [Concomitant]
     Active Substance: ATORVASTATIN
     Indication: Product used for unknown indication
     Dosage: 20 MG, QD (0-0-2-0)
     Route: 048
  9. DIGITOXIN [Concomitant]
     Active Substance: DIGITOXIN
     Indication: Product used for unknown indication
     Dosage: 0.05 MG (MONTAG MITTWOCH FREITAG MORGENS EINE TABLETTE, TABLETTEN)
     Route: 048
  10. VITAMIN B12 [Concomitant]
     Active Substance: CYANOCOBALAMIN
     Indication: Product used for unknown indication
     Dosage: 1000 UG, QW
     Route: 058
  11. DULCOLAX NOS [Concomitant]
     Active Substance: BISACODYL OR DOCUSATE SODIUM
     Indication: Product used for unknown indication
     Dosage: 10 MG (BEI BEDARF, DRAGEES)
     Route: 048
  12. PERENTEROL [Concomitant]
     Active Substance: SACCHAROMYCES CEREVISIAE
     Indication: Product used for unknown indication
     Dosage: 250 MG (BEI BEDARF, KAPSELN)
     Route: 048
  13. PANTOPRAZOLE [Concomitant]
     Active Substance: PANTOPRAZOLE
     Indication: Product used for unknown indication
     Dosage: 40 MG, QD (1-0-0-0)
     Route: 048
  14. TORSEMIDE [Concomitant]
     Active Substance: TORSEMIDE
     Indication: Product used for unknown indication
     Dosage: 10 MG, QD (1-0-0-0)
     Route: 048
  15. METAMIZOLE [Concomitant]
     Active Substance: METAMIZOLE
     Indication: Product used for unknown indication
     Dosage: UNK (BEI BEDARF, TROPFEN)
     Route: 048
  16. NITRENDIPINE [Concomitant]
     Active Substance: NITRENDIPINE
     Indication: Product used for unknown indication
     Dosage: BEI BEDARF, PHIOLE
     Route: 060
  17. NITRENDIPINE [Concomitant]
     Active Substance: NITRENDIPINE
     Dosage: BEI BEDARF, PHIOLE
     Route: 060
  18. CALCIUM VITAMIN D3 ACIS [Concomitant]
     Indication: Product used for unknown indication
     Dosage: UNK (400 IE, 1-1-0-0, BRAUSETABLETTEN)
     Route: 048

REACTIONS (3)
  - Humerus fracture [Unknown]
  - Dizziness [Unknown]
  - Fall [Unknown]
